FAERS Safety Report 20849388 (Version 4)
Quarter: 2022Q3

REPORT INFORMATION
  Report Type: Spontaneous
  Country: PL (occurrence: PL)
  Receive Date: 20220519
  Receipt Date: 20220722
  Transmission Date: 20221026
  Serious: Yes (Disabling, Other)
  Sender: FDA-Public Use
  Company Number: PL-Zentiva-2022-ZT-003671

PATIENT
  Age: 59 Year
  Sex: Female

DRUGS (24)
  1. PREGABALIN [Suspect]
     Active Substance: PREGABALIN
     Indication: Mental disorder
     Dosage: UNK
     Route: 048
  2. PREGABALIN [Suspect]
     Active Substance: PREGABALIN
     Indication: Mental status changes
     Dosage: UNK
     Route: 048
  3. PREGABALIN [Suspect]
     Active Substance: PREGABALIN
     Indication: Mental disorder
     Dosage: 75 MG, Q24H
     Route: 048
     Dates: start: 202005, end: 202009
  4. PREGABALIN [Suspect]
     Active Substance: PREGABALIN
     Dosage: 225 MILLIGRAM, QD
     Route: 065
  5. PREGABALIN [Suspect]
     Active Substance: PREGABALIN
     Dosage: 75 MILLIGRAM, UNK
     Route: 048
  6. PREGABALIN [Suspect]
     Active Substance: PREGABALIN
     Dosage: 150 MILLIGRAM, UNK
     Route: 048
  7. PREGABALIN [Suspect]
     Active Substance: PREGABALIN
     Dosage: 75 MILLIGRAM, BID
     Route: 048
  8. PREGABALIN [Suspect]
     Active Substance: PREGABALIN
     Dosage: 225 MILLIGRAM, QD
     Route: 048
  9. PREGABALIN [Suspect]
     Active Substance: PREGABALIN
     Dosage: 150 MG, QD
     Route: 065
  10. PREGABALIN [Suspect]
     Active Substance: PREGABALIN
     Dosage: 75 MG, Q24H (5 MONTH BEFORE THE END DAY) 2 ? 75 MG/24 H
     Route: 065
     Dates: end: 202009
  11. PREGABALIN [Suspect]
     Active Substance: PREGABALIN
     Dosage: 225 MG
     Route: 065
  12. ESCITALOPRAM [Suspect]
     Active Substance: ESCITALOPRAM OXALATE
     Indication: Mental disorder
     Dosage: UNK
     Route: 065
  13. FLUOXETINE [Suspect]
     Active Substance: FLUOXETINE HYDROCHLORIDE
     Indication: Mental disorder
     Dosage: UNK
     Route: 065
  14. AGOMELATINE [Suspect]
     Active Substance: AGOMELATINE
     Indication: Mental disorder
     Dosage: 25 MILLIGRAM, QD (25 MILLIGRAM, DAILY)
     Route: 065
  15. SULPIRIDE [Suspect]
     Active Substance: SULPIRIDE
     Indication: Mental disorder
     Dosage: 50 MILLIGRAM
     Route: 065
  16. SULPIRIDE [Suspect]
     Active Substance: SULPIRIDE
     Dosage: 50 MILLIGRAM
     Route: 065
  17. HYDROXYZINE [Suspect]
     Active Substance: HYDROXYZINE HYDROCHLORIDE
     Indication: Mental disorder
     Dosage: 25 MILLIGRAM, (25 MG AD HOC )
     Route: 065
  18. HYDROXYZINE [Suspect]
     Active Substance: HYDROXYZINE HYDROCHLORIDE
     Dosage: 25 MILLIGRAM, PRN
     Route: 065
  19. SULPIRIDE [Concomitant]
     Active Substance: SULPIRIDE
     Indication: Product used for unknown indication
     Dosage: 50 MILLIGRAM
     Route: 065
  20. MIANSERIN [Concomitant]
     Active Substance: MIANSERIN
     Indication: Product used for unknown indication
     Dosage: 30 MILLIGRAM
     Route: 065
  21. MIANSERIN [Concomitant]
     Active Substance: MIANSERIN
     Dosage: 60 MILLIGRAM, QD
     Route: 065
  22. NEBIVOLOL [Concomitant]
     Active Substance: NEBIVOLOL
     Indication: Hypertension
     Dosage: 5 MILLIGRAM, PM (IN THE EVENING)
     Route: 065
  23. HYDROXYZINE [Concomitant]
     Active Substance: HYDROXYZINE HYDROCHLORIDE
     Indication: Product used for unknown indication
     Dosage: 25 MILLIGRAM
     Route: 065
  24. AMLODIPINE [Concomitant]
     Active Substance: AMLODIPINE BESYLATE
     Indication: Hypertension
     Dosage: 2.5 MILLIGRAM, IN THE MORNING AND IN THE EVENING
     Route: 065

REACTIONS (14)
  - Sedation complication [Recovered/Resolved]
  - Enuresis [Recovered/Resolved]
  - Hepatic enzyme increased [Unknown]
  - Drug ineffective [Unknown]
  - Anxiety [Unknown]
  - Psychomotor hyperactivity [Unknown]
  - Tremor [Unknown]
  - Insomnia [Unknown]
  - Panic reaction [Unknown]
  - Fear [Unknown]
  - Hypertension [Unknown]
  - Drug intolerance [Unknown]
  - Product use in unapproved indication [Unknown]
  - Off label use [Unknown]
